FAERS Safety Report 6618778-5 (Version None)
Quarter: 2010Q1

REPORT INFORMATION
  Report Type: 
  Country: None (occurrence: None)
  Receive Date: 20100305
  Receipt Date: 20100305
  Transmission Date: 20100710
  Serious: Yes (Other)
  Sender: FDA-Public Use
  Company Number: None

PATIENT
  Age: 58 Year
  Sex: Female
  Weight: 56.246 kg

DRUGS (1)
  1. CIPROFLOXACIN HCL [Suspect]
     Indication: URINARY TRACT INFECTION
     Dosage: 1 TABLET 2 TIMES DAILY
     Dates: start: 20090827

REACTIONS (5)
  - BONE CYST [None]
  - HEART RATE IRREGULAR [None]
  - JOINT SPRAIN [None]
  - PALPITATIONS [None]
  - TENDON INJURY [None]
